FAERS Safety Report 24837126 (Version 1)
Quarter: 2025Q1

REPORT INFORMATION
  Report Type: Spontaneous
  Country: FR (occurrence: FR)
  Receive Date: 20250113
  Receipt Date: 20250113
  Transmission Date: 20250408
  Serious: Yes (Hospitalization, Other)
  Sender: FRESENIUS KABI
  Company Number: None

PATIENT
  Sex: Female
  Weight: 3.36 kg

DRUGS (1)
  1. ROPIVACAINE HYDROCHLORIDE ANHYDROUS [Suspect]
     Active Substance: ROPIVACAINE HYDROCHLORIDE ANHYDROUS
     Indication: Anaesthesia
     Dates: start: 20241110, end: 20241110

REACTIONS (1)
  - Neonatal seizure [Recovered/Resolved]

NARRATIVE: CASE EVENT DATE: 20241110
